FAERS Safety Report 18499267 (Version 1)
Quarter: 2020Q4

REPORT INFORMATION
  Report Type: Spontaneous
  Country: US (occurrence: US)
  Receive Date: 20201112
  Receipt Date: 20201112
  Transmission Date: 20210114
  Serious: Yes (Hospitalization)
  Sender: FDA-Public Use
  Company Number: US-009507513-2011USA006714

PATIENT
  Age: 80 Year
  Sex: Female

DRUGS (3)
  1. PRINIVIL [Suspect]
     Active Substance: LISINOPRIL
     Indication: HYPERTENSION
     Route: 065
  2. ACTIVASE [Suspect]
     Active Substance: ALTEPLASE
     Indication: CEREBROVASCULAR ACCIDENT
     Dosage: 56.25 MILLIGRAM
     Dates: start: 20170204, end: 20170204
  3. ACTIVASE [Suspect]
     Active Substance: ALTEPLASE
     Dosage: 5.63 MILLIGRAM
     Route: 065
     Dates: start: 20170204, end: 20170204

REACTIONS (2)
  - Lip swelling [Recovered/Resolved]
  - Drug hypersensitivity [Not Recovered/Not Resolved]

NARRATIVE: CASE EVENT DATE: 20170204
